FAERS Safety Report 18404263 (Version 2)
Quarter: 2021Q1

REPORT INFORMATION
  Report Type: Spontaneous
  Country: US (occurrence: US)
  Receive Date: 20201020
  Receipt Date: 20210129
  Transmission Date: 20210419
  Serious: No
  Sender: FDA-Public Use
  Company Number: US-TOLMAR, INC.-20US023249

PATIENT
  Age: 81 Year
  Sex: Male

DRUGS (2)
  1. ELIGARD [Suspect]
     Active Substance: LEUPROLIDE ACETATE
     Indication: PROSTATE CANCER
     Dosage: 45 MG, Q 6 MONTH
     Route: 058
     Dates: start: 20201002
  2. ELIGARD [Suspect]
     Active Substance: LEUPROLIDE ACETATE
     Dosage: 45 MG, Q 6 MONTH
     Route: 058
     Dates: start: 2018

REACTIONS (4)
  - Syringe issue [Unknown]
  - Wrong technique in product usage process [Unknown]
  - Intercepted product administration error [Unknown]
  - Device leakage [Unknown]

NARRATIVE: CASE EVENT DATE: 20201002
